FAERS Safety Report 7166674-X (Version None)
Quarter: 2010Q4

REPORT INFORMATION
  Report Type: 
  Country: None (occurrence: None)
  Receive Date: 20101216
  Receipt Date: 20101208
  Transmission Date: 20110411
  Serious: Yes (Hospitalization)
  Sender: FDA-Public Use
  Company Number: US-SANOFI-AVENTIS-2010SA075146

PATIENT
  Sex: Male
  Weight: 104.3 kg

DRUGS (7)
  1. AMBIEN [Suspect]
     Route: 048
  2. ZOLOFT [Suspect]
     Route: 048
     Dates: start: 20101001, end: 20101001
  3. PHENELZINE [Concomitant]
     Indication: DEPRESSION
  4. OXYCONTIN [Concomitant]
  5. TYLENOL (CAPLET) [Concomitant]
  6. TESTOSTERONE [Concomitant]
     Dates: end: 20100101
  7. ASCORBIC ACID [Concomitant]

REACTIONS (3)
  - SEROTONIN SYNDROME [None]
  - SOMNOLENCE [None]
  - WRONG DRUG ADMINISTERED [None]
